FAERS Safety Report 4352842-9 (Version None)
Quarter: 2004Q2

REPORT INFORMATION
  Report Type: 
  Country: None (occurrence: None)
  Receive Date: 20040429
  Receipt Date: 20040423
  Transmission Date: 20050107
  Serious: Yes (Hospitalization)
  Sender: FDA-Public Use
  Company Number: 23785

PATIENT
  Age: 2 Year
  Sex: Male

DRUGS (1)
  1. ALDARA [Suspect]
     Indication: MOLLUSCUM CONTAGIOSUM
     Dosage: 0.1 SACHET, 5 IN 1 WEEK(S)), TOPICAL
     Route: 061
     Dates: start: 20040406

REACTIONS (1)
  - IDIOPATHIC THROMBOCYTOPENIC PURPURA [None]
